FAERS Safety Report 20532229 (Version 1)
Quarter: 2022Q1

REPORT INFORMATION
  Report Type: Spontaneous
  Country: US (occurrence: None)
  Receive Date: 20220225
  Receipt Date: 20220225
  Transmission Date: 20220424
  Serious: Yes (Life-Threatening)
  Sender: FDA-Public Use
  Company Number: None

PATIENT
  Age: 46 Year
  Sex: Female

DRUGS (1)
  1. INVESTIGATIONAL PRODUCT [Suspect]
     Active Substance: INVESTIGATIONAL PRODUCT

REACTIONS (5)
  - Hypoaesthesia [None]
  - Musculoskeletal stiffness [None]
  - Erythema [None]
  - Tremor [None]
  - Anaphylactic reaction [None]

NARRATIVE: CASE EVENT DATE: 20220225
